FAERS Safety Report 19738774 (Version 1)
Quarter: 2021Q3

REPORT INFORMATION
  Report Type: Spontaneous
  Country: US (occurrence: US)
  Receive Date: 20210823
  Receipt Date: 20210823
  Transmission Date: 20211014
  Serious: No
  Sender: FDA-Public Use
  Company Number: US-BRAINTREE LABORATORIES, INC.-2020BTE01025

PATIENT
  Age: 74 Year
  Sex: Female
  Weight: 69.85 kg

DRUGS (1)
  1. GOLYTELY [Suspect]
     Active Substance: POLYETHYLENE GLYCOL 3350\POTASSIUM CHLORIDE\SODIUM BICARBONATE\SODIUM CHLORIDE\SODIUM SULFATE
     Indication: COLONOSCOPY
     Dosage: 2L
     Route: 048
     Dates: start: 20191231, end: 20191231

REACTIONS (4)
  - Vomiting [None]
  - Nausea [None]
  - Abdominal discomfort [None]
  - Pain [None]

NARRATIVE: CASE EVENT DATE: 20191231
